FAERS Safety Report 17730756 (Version 36)
Quarter: 2022Q4

REPORT INFORMATION
  Report Type: Report from Study
  Country: CA (occurrence: CA)
  Receive Date: 20200430
  Receipt Date: 20221005
  Transmission Date: 20230113
  Serious: Yes (Hospitalization, Other)
  Sender: FDA-Public Use
  Company Number: PHHY2016CA005296

PATIENT
  Age: 53 Year
  Sex: Female

DRUGS (6)
  1. SANDOSTATIN LAR DEPOT [Suspect]
     Active Substance: OCTREOTIDE ACETATE
     Indication: Carcinoid tumour
     Dosage: 20 MG, QMO
     Route: 030
     Dates: start: 201502
  2. SANDOSTATIN LAR DEPOT [Suspect]
     Active Substance: OCTREOTIDE ACETATE
     Dosage: 30 MG, QMO (ONCE A MONTH)
     Route: 030
     Dates: start: 20150201
  3. SANDOSTATIN LAR DEPOT [Suspect]
     Active Substance: OCTREOTIDE ACETATE
     Dosage: 30 MG, QMO
     Route: 030
     Dates: start: 20190513
  4. CODEINE [Suspect]
     Active Substance: CODEINE
     Indication: Product used for unknown indication
     Dosage: UNK
     Route: 065
  5. CRANBERRY [Concomitant]
     Active Substance: CRANBERRY
     Indication: Product used for unknown indication
     Dosage: UNK
     Route: 065
  6. CREON [Concomitant]
     Active Substance: PANCRELIPASE AMYLASE\PANCRELIPASE LIPASE\PANCRELIPASE PROTEASE
     Indication: Product used for unknown indication
     Dosage: UNK (1, QID; 25)
     Route: 048

REACTIONS (110)
  - Seizure [Unknown]
  - Loss of consciousness [Unknown]
  - Kidney infection [Unknown]
  - Cystitis [Unknown]
  - Foot fracture [Unknown]
  - Diabetes mellitus [Recovering/Resolving]
  - Renal impairment [Unknown]
  - Eye colour change [Unknown]
  - Cataract [Unknown]
  - Blindness [Unknown]
  - Peripheral swelling [Unknown]
  - Blood pressure increased [Unknown]
  - Malaise [Recovered/Resolved]
  - Head discomfort [Unknown]
  - Fall [Unknown]
  - Ligament sprain [Unknown]
  - Panic attack [Unknown]
  - Pain in extremity [Unknown]
  - Sleep disorder [Unknown]
  - Proctalgia [Unknown]
  - Stress [Unknown]
  - Haemorrhoids [Unknown]
  - Mood altered [Unknown]
  - Feeling hot [Unknown]
  - Tremor [Unknown]
  - Blood test abnormal [Unknown]
  - Decreased immune responsiveness [Unknown]
  - Bronchitis chronic [Unknown]
  - Asthma [Unknown]
  - Wheezing [Unknown]
  - Neck pain [Unknown]
  - Claustrophobia [Unknown]
  - Somnolence [Unknown]
  - White blood cell count decreased [Unknown]
  - Dysuria [Unknown]
  - Urine odour abnormal [Unknown]
  - Ear infection [Unknown]
  - Feeding disorder [Unknown]
  - Excessive cerumen production [Unknown]
  - Miosis [Unknown]
  - Balance disorder [Unknown]
  - Depressed mood [Unknown]
  - Nasopharyngitis [Recovered/Resolved]
  - Oropharyngeal pain [Unknown]
  - Cough [Unknown]
  - Decreased appetite [Unknown]
  - Vision blurred [Unknown]
  - Renal cyst [Unknown]
  - Musculoskeletal chest pain [Unknown]
  - Insomnia [Unknown]
  - Back pain [Unknown]
  - Breast pain [Unknown]
  - Illness [Unknown]
  - Anxiety [Unknown]
  - Illness [Unknown]
  - Dysphonia [Unknown]
  - Malaise [Unknown]
  - Upper limb fracture [Unknown]
  - Limb discomfort [Unknown]
  - Pollakiuria [Unknown]
  - Hypoaesthesia [Unknown]
  - Joint noise [Unknown]
  - Anal incontinence [Unknown]
  - Contusion [Unknown]
  - Faeces soft [Unknown]
  - Menopausal symptoms [Unknown]
  - Visual impairment [Unknown]
  - Eye irritation [Unknown]
  - Body height decreased [Unknown]
  - Weight decreased [Unknown]
  - Poor quality sleep [Unknown]
  - Gait disturbance [Unknown]
  - Fear [Unknown]
  - Discomfort [Unknown]
  - Gastrooesophageal reflux disease [Unknown]
  - Thyroid disorder [Unknown]
  - Eating disorder [Unknown]
  - Pancreatic disorder [Unknown]
  - Feeling abnormal [Unknown]
  - Urinary tract infection [Unknown]
  - Hyperhidrosis [Unknown]
  - Hypersomnia [Unknown]
  - Polyuria [Unknown]
  - Cold sweat [Unknown]
  - Dysphagia [Unknown]
  - Pain [Unknown]
  - Nervousness [Unknown]
  - Joint injury [Unknown]
  - Sleep apnoea syndrome [Unknown]
  - Flatulence [Unknown]
  - Headache [Unknown]
  - Asthenia [Unknown]
  - Blood glucose decreased [Unknown]
  - Blood glucose increased [Unknown]
  - Diarrhoea [Unknown]
  - Dyspepsia [Unknown]
  - Abdominal discomfort [Unknown]
  - Vomiting [Unknown]
  - Abdominal pain [Unknown]
  - Dizziness [Unknown]
  - Frequent bowel movements [Recovering/Resolving]
  - Fatigue [Unknown]
  - Nausea [Unknown]
  - Abdominal pain upper [Unknown]
  - Confusional state [Unknown]
  - Injection site haemorrhage [Unknown]
  - Injection site pain [Unknown]
  - Injection site mass [Recovered/Resolved]
  - Injection site paraesthesia [Not Recovered/Not Resolved]
  - Injection site mass [Unknown]

NARRATIVE: CASE EVENT DATE: 20160218
